FAERS Safety Report 6332107-6 (Version None)
Quarter: 2009Q3

REPORT INFORMATION
  Report Type: 
  Country: None (occurrence: None)
  Receive Date: 20090828
  Receipt Date: 20090818
  Transmission Date: 20100115
  Serious: Yes (Hospitalization)
  Sender: FDA-Public Use
  Company Number: TR-BAYER-200910130GPV

PATIENT
  Age: 45 Year
  Sex: Female
  Weight: 60 kg

DRUGS (5)
  1. BETAFERON [Suspect]
     Indication: MULTIPLE SCLEROSIS
     Route: 058
     Dates: start: 20011207, end: 20090425
  2. BETAFERON [Suspect]
     Dates: start: 20090429, end: 20090701
  3. BETAFERON [Suspect]
     Dates: start: 20090816
  4. SIRDALUD [Concomitant]
     Indication: DRUG USE FOR UNKNOWN INDICATION
     Route: 048
  5. APRANAX [Concomitant]
     Indication: ANALGESIC THERAPY
     Route: 048
     Dates: end: 20090701

REACTIONS (7)
  - ANAEMIA [None]
  - ASTHENIA [None]
  - GAIT DISTURBANCE [None]
  - GASTRIC HAEMORRHAGE [None]
  - GASTROINTESTINAL HAEMORRHAGE [None]
  - INSOMNIA [None]
  - PYREXIA [None]
